FAERS Safety Report 12603342 (Version 1)
Quarter: 2016Q3

REPORT INFORMATION
  Report Type: Report from Study
  Country: PE (occurrence: PE)
  Receive Date: 20160728
  Receipt Date: 20160728
  Transmission Date: 20161109
  Serious: Yes (Hospitalization)
  Sender: FDA-Public Use
  Company Number: PE-009507513-1607PER010536

PATIENT
  Age: 73 Year
  Sex: Male

DRUGS (2)
  1. RINELON 50 MCG/DOSES NASAL SPRAY SUSPENSION [Suspect]
     Active Substance: MOMETASONE FUROATE
     Indication: NASAL DISCOMFORT
  2. RINELON 50 MCG/DOSES NASAL SPRAY SUSPENSION [Suspect]
     Active Substance: MOMETASONE FUROATE
     Indication: NASAL DRYNESS
     Dosage: 2 DF, TID
     Route: 045
     Dates: start: 2013

REACTIONS (3)
  - Lung disorder [Unknown]
  - Inappropriate schedule of drug administration [Unknown]
  - Prescribed overdose [Unknown]

NARRATIVE: CASE EVENT DATE: 2013
